FAERS Safety Report 19935841 (Version 1)
Quarter: 2021Q4

REPORT INFORMATION
  Report Type: Spontaneous
  Country: CA (occurrence: CA)
  Receive Date: 20211008
  Receipt Date: 20211008
  Transmission Date: 20220303
  Serious: Yes (Other)
  Sender: FDA-Public Use
  Company Number: CA-TEVA-2021-CA-1961996

PATIENT
  Age: 93 Year
  Sex: Female
  Weight: 48 kg

DRUGS (7)
  1. VALACYCLOVIR HYDROCHLORIDE [Suspect]
     Active Substance: VALACYCLOVIR HYDROCHLORIDE
     Indication: Oral herpes
     Dosage: 1000 MILLIGRAM DAILY;
     Route: 048
  2. COLCHICINE [Concomitant]
     Active Substance: COLCHICINE
  3. OLANZAPINE [Concomitant]
     Active Substance: OLANZAPINE
  4. RISPERIDONE [Concomitant]
     Active Substance: RISPERIDONE
  5. SERTRALINE [Concomitant]
     Active Substance: SERTRALINE HYDROCHLORIDE
  6. TRAZODONE [Concomitant]
     Active Substance: TRAZODONE HYDROCHLORIDE
  7. VITAMIN D [Concomitant]
     Active Substance: VITAMIN D NOS

REACTIONS (5)
  - Blood pressure decreased [Unknown]
  - Defaecation urgency [Unknown]
  - Drooling [Unknown]
  - Unresponsive to stimuli [Unknown]
  - Vomiting [Unknown]
